FAERS Safety Report 18322793 (Version 1)
Quarter: 2020Q3

REPORT INFORMATION
  Report Type: Report from Study
  Country: ES (occurrence: ES)
  Receive Date: 20200928
  Receipt Date: 20200928
  Transmission Date: 20201103
  Serious: Yes (Life-Threatening, Hospitalization)
  Sender: FDA-Public Use
  Company Number: ES-MYLANLABS-2020M1082492

PATIENT
  Age: 72 Year
  Sex: Female

DRUGS (6)
  1. CARBAMAZEPINA [Interacting]
     Active Substance: CARBAMAZEPINE
     Indication: PAIN
     Dosage: UNK
     Route: 048
     Dates: start: 20160119, end: 20160131
  2. PROPAFENONE HYDROCHLORIDE. [Concomitant]
     Active Substance: PROPAFENONE HYDROCHLORIDE
     Indication: ATRIAL FIBRILLATION
     Dosage: 300 MILLIGRAM, QD (DOSIS UNIDAD FRECUENCIA: 300 MG?MILIGRAMOS)
     Route: 048
  3. SIMVASTATINA [Concomitant]
     Active Substance: SIMVASTATIN
     Indication: HYPERLIPIDAEMIA
     Dosage: 20 MILLIGRAM, QD(DOSIS UNIDAD FRECUENCIA: 20 MG?MILIGRAMOS)
     Route: 048
  4. ENALAPRIL [Suspect]
     Active Substance: ENALAPRIL
     Indication: HYPERTENSION
     Dosage: UNK
     Route: 048
     Dates: end: 20160201
  5. HYDROCHLOROTHIAZIDE. [Interacting]
     Active Substance: HYDROCHLOROTHIAZIDE
     Indication: HYPERTENSION
     Dosage: UNK (UNIDAD DE FRECUENCIA: 0 DIA)
     Route: 048
     Dates: end: 20160201
  6. BUPRENORFINA                       /00444001/ [Concomitant]
     Active Substance: BUPRENORPHINE
     Indication: PAIN
     Dosage: 1.16 MICROGRAM, QD(DOSIS UNIDAD FRECUENCIA: 1.16 MICROG?MICROGRAMOS)
     Route: 062
     Dates: start: 201601, end: 20160201

REACTIONS (2)
  - Drug interaction [Unknown]
  - Hyponatraemia [Recovered/Resolved]

NARRATIVE: CASE EVENT DATE: 20160129
